FAERS Safety Report 9775577 (Version 1)
Quarter: 2013Q4

REPORT INFORMATION
  Report Type: Spontaneous
  Country: US (occurrence: US)
  Receive Date: 20131220
  Receipt Date: 20131220
  Transmission Date: 20140711
  Serious: No
  Sender: FDA-Public Use
  Company Number: US-GALDERMA-US13003751

PATIENT
  Sex: Female

DRUGS (2)
  1. MIRVASO (BRIMONIDINE) TOPICAL GEL, 0.33% [Suspect]
     Dosage: 0.33%
     Route: 061
  2. SULFACETAMIDE [Suspect]
     Route: 061

REACTIONS (2)
  - Rash [Recovered/Resolved]
  - Dermatitis contact [Recovered/Resolved]
